FAERS Safety Report 9624041 (Version 1)
Quarter: 2013Q4

REPORT INFORMATION
  Report Type: Spontaneous
  Country: KR (occurrence: KR)
  Receive Date: 20131015
  Receipt Date: 20131015
  Transmission Date: 20140711
  Serious: Yes (Death)
  Sender: FDA-Public Use
  Company Number: KR-OTSUKA-JP-2013-14297

PATIENT
  Age: 34 Year
  Sex: Male

DRUGS (4)
  1. BUSULFEX [Suspect]
     Indication: GRAFT VERSUS HOST DISEASE
     Dosage: 3.2 MG/KG, DAILY DOSE
     Route: 042
  2. CYCLOSPORIN A [Concomitant]
     Indication: GRAFT VERSUS HOST DISEASE
     Dosage: UNK UNK, DAILY DOSE
     Route: 042
  3. METHOTREXATE [Concomitant]
     Indication: GRAFT VERSUS HOST DISEASE
     Dosage: UNK
  4. CYCLOPHOSPHAMIDE [Concomitant]
     Indication: GRAFT VERSUS HOST DISEASE
     Dosage: 60 MG/KG, DAILY DOSE

REACTIONS (1)
  - Cytomegalovirus infection [Fatal]
